FAERS Safety Report 7756679-X (Version None)
Quarter: 2011Q3

REPORT INFORMATION
  Report Type: 
  Country: None (occurrence: None)
  Receive Date: 20110915
  Receipt Date: 20110915
  Transmission Date: 20111222
  Serious: Yes (Other)
  Sender: FDA-Public Use
  Company Number: None

PATIENT
  Sex: Male

DRUGS (1)
  1. SCOPE MOUTHWASH, ORIGINAL MINT FLAVOR (CONTINUED) [Suspect]
     Dosage: 1 APPLICATION 1 ONLY INTRAORAL
     Route: 048
     Dates: start: 20110802, end: 20110802

REACTIONS (5)
  - DYSPNOEA [None]
  - URTICARIA [None]
  - THROAT TIGHTNESS [None]
  - NO REACTION ON PREVIOUS EXPOSURE TO DRUG [None]
  - PRODUCT QUALITY ISSUE [None]
